FAERS Safety Report 5177955-3 (Version None)
Quarter: 2006Q4

REPORT INFORMATION
  Report Type: 
  Country: None (occurrence: None)
  Receive Date: 20061218
  Receipt Date: 20060801
  Transmission Date: 20070319
  Serious: No
  Sender: FDA-Public Use
  Company Number: US-AMGEN-KDL188705

PATIENT
  Sex: Female

DRUGS (3)
  1. ENBREL [Suspect]
     Indication: RHEUMATOID ARTHRITIS
     Route: 058
     Dates: start: 20041206
  2. METHOTREXATE [Concomitant]
     Route: 048
  3. PLAQUENIL [Concomitant]

REACTIONS (4)
  - ARTHRALGIA [None]
  - PERIORBITAL HAEMATOMA [None]
  - TOOTH INFECTION [None]
  - TOOTHACHE [None]
